FAERS Safety Report 17009779 (Version 1)
Quarter: 2019Q4

REPORT INFORMATION
  Report Type: Spontaneous
  Country: US (occurrence: US)
  Receive Date: 20190930
  Receipt Date: 20190930
  Transmission Date: 20200122
  Serious: Yes (Other)
  Sender: FDA-Public Use
  Company Number: None

PATIENT
  Age: 27 Year
  Sex: Female

DRUGS (1)
  1. ENBREL [Suspect]
     Active Substance: ETANERCEPT
     Indication: RHEUMATOID ARTHRITIS
     Route: 059
     Dates: start: 201901, end: 201909

REACTIONS (2)
  - Therapeutic product effect incomplete [None]
  - Therapy cessation [None]

NARRATIVE: CASE EVENT DATE: 20190930
